FAERS Safety Report 11875241 (Version 1)
Quarter: 2015Q4

REPORT INFORMATION
  Report Type: Report from Study
  Country: AU (occurrence: AU)
  Receive Date: 20151229
  Receipt Date: 20151229
  Transmission Date: 20160305
  Serious: Yes (Other)
  Sender: FDA-Public Use
  Company Number: AU-JNJFOC-20151221514

PATIENT

DRUGS (2)
  1. XARELTO [Suspect]
     Active Substance: RIVAROXABAN
     Indication: EMBOLISM VENOUS
     Route: 048
  2. XARELTO [Suspect]
     Active Substance: RIVAROXABAN
     Indication: PULMONARY EMBOLISM
     Route: 048

REACTIONS (13)
  - Antiphospholipid syndrome [Unknown]
  - Dizziness [Unknown]
  - Nausea [Unknown]
  - Syncope [Unknown]
  - Feeling hot [Unknown]
  - Back pain [Unknown]
  - Hyperhidrosis [Unknown]
  - Vision blurred [Unknown]
  - Arthralgia [Unknown]
  - Irritable bowel syndrome [Unknown]
  - Diplopia [Unknown]
  - Fatigue [Unknown]
  - Migraine [Unknown]
